FAERS Safety Report 14312028 (Version 1)
Quarter: 2017Q4

REPORT INFORMATION
  Report Type: Report from Study
  Country: DE (occurrence: DE)
  Receive Date: 20171221
  Receipt Date: 20171221
  Transmission Date: 20180321
  Serious: Yes (Other)
  Sender: FDA-Public Use
  Company Number: DE-IPSEN BIOPHARMACEUTICALS, INC.-2017-15937

PATIENT
  Sex: Female

DRUGS (1)
  1. SOMATULINE [Suspect]
     Active Substance: LANREOTIDE ACETATE
     Indication: NEUROENDOCRINE TUMOUR
     Dosage: NOT REPORTED
     Route: 065

REACTIONS (5)
  - Injection site pain [Unknown]
  - Diarrhoea [Unknown]
  - Injection site swelling [Unknown]
  - Abdominal pain upper [Unknown]
  - Neoplasm progression [Recovered/Resolved]

NARRATIVE: CASE EVENT DATE: 201412
